FAERS Safety Report 26151783 (Version 1)
Quarter: 2025Q4

REPORT INFORMATION
  Report Type: Spontaneous
  Country: US (occurrence: US)
  Receive Date: 20251214
  Receipt Date: 20251214
  Transmission Date: 20260117
  Serious: No
  Sender: Atnahs Healthcare
  Company Number: US-ATNAHS-ATNAHS20250604515

PATIENT
  Age: 63 Year
  Sex: Female

DRUGS (11)
  1. DIAZEPAM [Suspect]
     Active Substance: DIAZEPAM
     Indication: Type 2 diabetes mellitus
  2. DIAZEPAM [Suspect]
     Active Substance: DIAZEPAM
     Indication: Diabetic retinopathy
  3. DIAZEPAM [Suspect]
     Active Substance: DIAZEPAM
     Indication: Macular oedema
  4. VABYSMO [Suspect]
     Active Substance: FARICIMAB-SVOA
     Indication: Type 2 diabetes mellitus
     Dosage: 6 MILLIGRAM, 1 IN 6 WEEK
  5. VABYSMO [Suspect]
     Active Substance: FARICIMAB-SVOA
     Indication: Diabetic retinopathy
  6. VABYSMO [Suspect]
     Active Substance: FARICIMAB-SVOA
     Indication: Macular oedema
  7. LUCENTIS [Concomitant]
     Active Substance: RANIBIZUMAB
     Indication: Product used for unknown indication
  8. EYLEA HD [Concomitant]
     Active Substance: AFLIBERCEPT
     Indication: Product used for unknown indication
  9. OXYCONTIN [Concomitant]
     Active Substance: OXYCODONE HYDROCHLORIDE
     Indication: Product used for unknown indication
  10. TROSPIUM [Concomitant]
     Active Substance: TROSPIUM
     Indication: Product used for unknown indication
  11. OXYBUTYNIN [Concomitant]
     Active Substance: OXYBUTYNIN
     Indication: Product used for unknown indication

REACTIONS (2)
  - Drug hypersensitivity [Unknown]
  - Off label use [Unknown]
